FAERS Safety Report 21414407 (Version 2)
Quarter: 2023Q1

REPORT INFORMATION
  Report Type: Spontaneous
  Country: US (occurrence: US)
  Receive Date: 20221006
  Receipt Date: 20230106
  Transmission Date: 20230417
  Serious: No
  Sender: FDA-Public Use
  Company Number: US-ALLERGAN-2227565US

PATIENT
  Sex: Female

DRUGS (2)
  1. QULIPTA [Suspect]
     Active Substance: ATOGEPANT
     Indication: Product used for unknown indication
     Dosage: UNK
  2. QULIPTA [Suspect]
     Active Substance: ATOGEPANT
     Dosage: 60 MG

REACTIONS (3)
  - COVID-19 [Recovering/Resolving]
  - Therapy interrupted [Unknown]
  - Migraine [Recovering/Resolving]
